FAERS Safety Report 5914238-5 (Version None)
Quarter: 2008Q4

REPORT INFORMATION
  Report Type: 
  Country: None (occurrence: None)
  Receive Date: 20081009
  Receipt Date: 20081003
  Transmission Date: 20090506
  Serious: No
  Sender: FDA-Public Use
  Company Number: US-B.I. PHARMACEUTICALS,INC./RIDGEFIELD-2008-BP-15375BP

PATIENT
  Age: 51 Year
  Sex: Male

DRUGS (5)
  1. SPIRIVA [Suspect]
     Indication: ASTHMA
     Dosage: 18MCG
     Route: 055
     Dates: start: 20080920
  2. PANTOPROZOL [Concomitant]
     Indication: ASTHMA
     Dosage: 40MG
     Dates: start: 20080920
  3. SINGULAIR [Concomitant]
     Indication: ASTHMA
     Dosage: 10MG
     Dates: start: 20080920
  4. ALBUTEROL [Concomitant]
     Indication: ASTHMA
     Dates: start: 20080920
  5. ADVAIR DISKUS 100/50 [Concomitant]
     Indication: ASTHMA
     Dates: start: 20080920

REACTIONS (2)
  - FATIGUE [None]
  - HYPERHIDROSIS [None]
